APPROVED DRUG PRODUCT: PREGABALIN
Active Ingredient: PREGABALIN
Strength: 20MG/ML
Dosage Form/Route: SOLUTION;ORAL
Application: A212604 | Product #001 | TE Code: AA
Applicant: ANDA REPOSITORY LLC
Approved: Feb 18, 2022 | RLD: No | RS: No | Type: RX